FAERS Safety Report 7876446-6 (Version None)
Quarter: 2011Q4

REPORT INFORMATION
  Report Type: 
  Country: None (occurrence: None)
  Receive Date: 20111031
  Receipt Date: 20111025
  Transmission Date: 20120403
  Serious: Yes (Other)
  Sender: FDA-Public Use
  Company Number: IE-B.I. PHARMACEUTICALS,INC./RIDGEFIELD-2011-UK-01161UK

PATIENT
  Age: 7 Decade
  Sex: Female

DRUGS (2)
  1. DICLOFENAC SODIUM [Concomitant]
  2. PRADAXA [Suspect]
     Indication: THROMBOSIS PROPHYLAXIS
     Dosage: 220 MG

REACTIONS (2)
  - DEEP VEIN THROMBOSIS [None]
  - RECTAL HAEMORRHAGE [None]
